FAERS Safety Report 12719850 (Version 3)
Quarter: 2016Q4

REPORT INFORMATION
  Report Type: Spontaneous
  Country: US (occurrence: US)
  Receive Date: 20160907
  Receipt Date: 20161118
  Transmission Date: 20170207
  Serious: Yes (Other)
  Sender: FDA-Public Use
  Company Number: US-JNJFOC-20160702846

PATIENT
  Age: 56 Year
  Sex: Male

DRUGS (5)
  1. AVELOX [Suspect]
     Active Substance: MOXIFLOXACIN HYDROCHLORIDE
     Indication: PLASMA CELL MYELOMA
     Route: 048
     Dates: start: 20120229
  2. AVELOX [Suspect]
     Active Substance: MOXIFLOXACIN HYDROCHLORIDE
     Indication: PLASMA CELL MYELOMA
     Route: 048
     Dates: start: 20111121
  3. LEVAQUIN [Suspect]
     Active Substance: LEVOFLOXACIN
     Indication: PLASMA CELL MYELOMA
     Route: 048
     Dates: start: 20101001
  4. LEVAQUIN [Suspect]
     Active Substance: LEVOFLOXACIN
     Indication: PLASMA CELL MYELOMA
     Route: 048
     Dates: start: 20071001
  5. AVELOX [Suspect]
     Active Substance: MOXIFLOXACIN HYDROCHLORIDE
     Indication: PLASMA CELL MYELOMA
     Route: 048
     Dates: start: 20110511

REACTIONS (9)
  - Mental disorder [Unknown]
  - Off label use [Unknown]
  - Skin disorder [Unknown]
  - Hypoacusis [Unknown]
  - Musculoskeletal disorder [Unknown]
  - Visual impairment [Unknown]
  - Cardiovascular disorder [Unknown]
  - Product use issue [Unknown]
  - Neuropathy peripheral [Not Recovered/Not Resolved]

NARRATIVE: CASE EVENT DATE: 20071001
